FAERS Safety Report 19780727 (Version 2)
Quarter: 2023Q1

REPORT INFORMATION
  Report Type: Spontaneous
  Country: TR (occurrence: TR)
  Receive Date: 20210902
  Receipt Date: 20230112
  Transmission Date: 20230417
  Serious: Yes (Hospitalization, Other)
  Sender: FDA-Public Use
  Company Number: TR-LUPIN PHARMACEUTICALS INC.-2021-16304

PATIENT
  Age: 60 Year
  Sex: Female

DRUGS (3)
  1. VANCOMYCIN [Suspect]
     Active Substance: VANCOMYCIN
     Indication: Endocarditis bacterial
     Dosage: UNK
     Route: 065
  2. CIPROFLOXACIN [Suspect]
     Active Substance: CIPROFLOXACIN
     Indication: Urinary tract infection
     Dosage: 400 MILLIGRAM, QD
     Route: 048
  3. GENTAMICIN [Suspect]
     Active Substance: GENTAMICIN
     Indication: Endocarditis bacterial
     Dosage: UNK
     Route: 065

REACTIONS (4)
  - Pneumonia klebsiella [Unknown]
  - Toxic epidermal necrolysis [Recovering/Resolving]
  - Acinetobacter infection [Unknown]
  - Drug hypersensitivity [Recovering/Resolving]
